FAERS Safety Report 5495261-4 (Version None)
Quarter: 2007Q4

REPORT INFORMATION
  Report Type: 
  Country: None (occurrence: None)
  Receive Date: 20071023
  Receipt Date: 20071012
  Transmission Date: 20080405
  Serious: Yes (Hospitalization)
  Sender: FDA-Public Use
  Company Number: 2006US000924

PATIENT
  Age: 67 Year
  Sex: Male

DRUGS (11)
  1. PROGRAF [Suspect]
     Indication: PROPHYLAXIS AGAINST TRANSPLANT REJECTION
     Dosage: 9 MG, UID/QD, ORAL
     Route: 048
     Dates: start: 20060208
  2. MYCOPHENOLATE MOFETIL [Suspect]
     Indication: PROPHYLAXIS AGAINST TRANSPLANT REJECTION
     Dosage: 500 MG, TID, ORAL
     Route: 048
     Dates: start: 20051212, end: 20060418
  3. PREDNISONE TAB [Suspect]
     Indication: PROPHYLAXIS AGAINST TRANSPLANT REJECTION
     Dosage: 2.5 MG, UID/QD, ORAL
     Route: 048
     Dates: start: 20051230
  4. INSULIN (INSULIN HUMAN) [Concomitant]
  5. CALCIUM CARBONATE [Concomitant]
  6. ALLOPURINOL [Concomitant]
  7. ZOCOR [Concomitant]
  8. HYDROCHLOROTHIAZIDE [Concomitant]
  9. ROCALTROL [Concomitant]
  10. HEPARIN [Concomitant]
  11. LOPRESSOR [Concomitant]

REACTIONS (9)
  - ACUTE PRERENAL FAILURE [None]
  - ANAEMIA [None]
  - ATELECTASIS [None]
  - CHEST X-RAY ABNORMAL [None]
  - DEHYDRATION [None]
  - DIARRHOEA [None]
  - HAEMORRHAGE URINARY TRACT [None]
  - NAUSEA [None]
  - VOMITING [None]
